FAERS Safety Report 26054039 (Version 2)
Quarter: 2025Q4

REPORT INFORMATION
  Report Type: Spontaneous
  Country: CN (occurrence: CN)
  Receive Date: 20251117
  Receipt Date: 20251120
  Transmission Date: 20260118
  Serious: Yes (Other)
  Sender: PFIZER
  Company Number: CN-PFIZER INC-PV202500133334

PATIENT
  Age: 17 Year
  Sex: Female
  Weight: 50 kg

DRUGS (8)
  1. BRENTUXIMAB VEDOTIN [Suspect]
     Active Substance: BRENTUXIMAB VEDOTIN
     Indication: Follicular lymphoma
     Dosage: UNK
     Route: 065
  2. BRENTUXIMAB VEDOTIN [Suspect]
     Active Substance: BRENTUXIMAB VEDOTIN
     Dosage: 50 MG, 1X/DAY
     Route: 041
     Dates: start: 20251024
  3. EPIRUBICIN [Suspect]
     Active Substance: EPIRUBICIN
     Indication: Follicular lymphoma
     Dosage: UNK
     Route: 065
  4. EPIRUBICIN [Suspect]
     Active Substance: EPIRUBICIN
     Dosage: 57 MG, 1X/DAY
     Route: 041
     Dates: start: 20251024
  5. DACARBAZINE [Suspect]
     Active Substance: DACARBAZINE
     Indication: Follicular lymphoma
     Dosage: UNK
     Route: 065
  6. DACARBAZINE [Suspect]
     Active Substance: DACARBAZINE
     Dosage: 572 MG, 1X/DAY
     Route: 041
     Dates: start: 20251024
  7. VINORELBINE TARTRATE [Suspect]
     Active Substance: VINORELBINE TARTRATE
     Indication: Follicular lymphoma
     Dosage: UNK
     Route: 065
  8. VINORELBINE TARTRATE [Suspect]
     Active Substance: VINORELBINE TARTRATE
     Dosage: 4 MG, 1X/DAY
     Route: 041
     Dates: start: 20251024

REACTIONS (1)
  - Myelosuppression [Recovering/Resolving]

NARRATIVE: CASE EVENT DATE: 20251101
